FAERS Safety Report 24657771 (Version 1)
Quarter: 2024Q4

REPORT INFORMATION
  Report Type: Spontaneous
  Country: FR (occurrence: FR)
  Receive Date: 20241125
  Receipt Date: 20241125
  Transmission Date: 20250114
  Serious: Yes (Hospitalization)
  Sender: ROCHE
  Company Number: None

PATIENT
  Age: 43 Year
  Sex: Female
  Weight: 70 kg

DRUGS (6)
  1. TRASTUZUMAB EMTANSINE [Suspect]
     Active Substance: TRASTUZUMAB EMTANSINE
     Indication: Hormone receptor negative HER2 positive breast cancer
     Dosage: C1 = 3.6 MG/KG
     Route: 042
     Dates: start: 20240605
  2. TRASTUZUMAB EMTANSINE [Suspect]
     Active Substance: TRASTUZUMAB EMTANSINE
     Dosage: C3 = 3.6 MG/KG
     Route: 042
     Dates: start: 20240718
  3. TRASTUZUMAB EMTANSINE [Suspect]
     Active Substance: TRASTUZUMAB EMTANSINE
     Dosage: C4 = 3.6 MG/KG
     Route: 042
     Dates: start: 20240808
  4. TRASTUZUMAB EMTANSINE [Suspect]
     Active Substance: TRASTUZUMAB EMTANSINE
     Dosage: C5 = 3 MG/KG THEN STOP
     Route: 042
     Dates: start: 20240917, end: 20240917
  5. CELLCEPT [Suspect]
     Active Substance: MYCOPHENOLATE MOFETIL
     Indication: Lung transplant
     Dosage: 500 MG 2X/D
     Route: 048
     Dates: start: 20150101
  6. TACROLIMUS [Suspect]
     Active Substance: TACROLIMUS
     Indication: Lung transplant
     Dosage: 6.5 MG 2X/J
     Route: 048
     Dates: start: 20150101

REACTIONS (2)
  - Thrombocytopenia [Not Recovered/Not Resolved]
  - Acute kidney injury [Not Recovered/Not Resolved]

NARRATIVE: CASE EVENT DATE: 20240827
